FAERS Safety Report 11572616 (Version 1)
Quarter: 2015Q3

REPORT INFORMATION
  Report Type: Report from Study
  Country: None (occurrence: US)
  Receive Date: 20150929
  Receipt Date: 20150929
  Transmission Date: 20151125
  Serious: Yes (Hospitalization, Other)
  Sender: FDA-Public Use
  Company Number: US-AMAG PHARMACEUTICALS, INC.-AMAG201500211

PATIENT

DRUGS (2)
  1. MAKENA [Suspect]
     Active Substance: HYDROXYPROGESTERONE CAPROATE
     Indication: PREMATURE DELIVERY
     Dosage: 250 MG, WEEKLY
     Route: 030
     Dates: start: 20141117, end: 20150217
  2. VITAFOL [Concomitant]
     Indication: PREGNANCY
     Dosage: 1 UNK, QD
     Route: 048
     Dates: start: 201409

REACTIONS (2)
  - HELLP syndrome [Unknown]
  - Premature delivery [Unknown]

NARRATIVE: CASE EVENT DATE: 20150220
